FAERS Safety Report 22000153 (Version 2)
Quarter: 2023Q1

REPORT INFORMATION
  Report Type: Spontaneous
  Country: US (occurrence: US)
  Receive Date: 20230216
  Receipt Date: 20230317
  Transmission Date: 20230418
  Serious: Yes (Other)
  Sender: FDA-Public Use
  Company Number: US-PFIZER INC-PV202300029690

PATIENT
  Age: 79 Year
  Sex: Female
  Weight: 73.016 kg

DRUGS (3)
  1. IBRANCE [Suspect]
     Active Substance: PALBOCICLIB
     Indication: Breast cancer metastatic
     Dosage: 125 MG, CYCLIC (21 DAYS, 7 DAYS OFF)
     Dates: start: 201711
  2. IBRANCE [Suspect]
     Active Substance: PALBOCICLIB
     Dosage: 100 MG,  CYCLIC (21 DAYS, 7 DAYS OFF)
     Dates: start: 202201
  3. FASLODEX [Concomitant]
     Active Substance: FULVESTRANT
     Dosage: 500 MG, MONTHLY
     Route: 030
     Dates: start: 201711

REACTIONS (2)
  - Upper limb fracture [Not Recovered/Not Resolved]
  - Cataract [Recovered/Resolved]
